FAERS Safety Report 6263444-1 (Version None)
Quarter: 2009Q3

REPORT INFORMATION
  Report Type: 
  Country: None (occurrence: None)
  Receive Date: 20090710
  Receipt Date: 20090403
  Transmission Date: 20100115
  Serious: No
  Sender: FDA-Public Use
  Company Number: A0769506A

PATIENT
  Sex: Female

DRUGS (8)
  1. FLOVENT [Suspect]
     Indication: CHRONIC OBSTRUCTIVE PULMONARY DISEASE
     Dosage: 2PUFF TWICE PER DAY
     Route: 055
     Dates: start: 20070101
  2. THEOPHYLLINE [Concomitant]
  3. CLARITIN [Concomitant]
  4. SIMVASTATIN [Concomitant]
  5. MUCINEX [Concomitant]
  6. COREG [Concomitant]
  7. IPRATROPIUM BROMIDE [Concomitant]
  8. ALBUTEROL [Concomitant]

REACTIONS (3)
  - FEELING ABNORMAL [None]
  - MALAISE [None]
  - PRODUCT QUALITY ISSUE [None]
